FAERS Safety Report 10416825 (Version 2)
Quarter: 2014Q3

REPORT INFORMATION
  Report Type: Report from Study
  Country: US (occurrence: US)
  Receive Date: 20140828
  Receipt Date: 20140828
  Transmission Date: 20150326
  Serious: Yes (Other)
  Sender: FDA-Public Use
  Company Number: US-BRISTOL-MYERS SQUIBB COMPANY-19187244

PATIENT
  Age: 19 Year
  Sex: Female
  Weight: 44.6 kg

DRUGS (4)
  1. RIFAXIMIN [Concomitant]
     Active Substance: RIFAXIMIN
  2. METRELEPTIN [Suspect]
     Active Substance: INVESTIGATIONAL PRODUCT
     Indication: CONGENITAL GENERALISED LIPODYSTROPHY
     Dosage: EXACT STOP DATE NOT PROVIDED ONLY 2013
     Dates: start: 20100317, end: 20131128
  3. CALCIUM + VITAMIN D [Concomitant]
     Active Substance: CALCIUM\VITAMIN D
  4. INSULIN REGULAR HUMAN [Concomitant]

REACTIONS (1)
  - Neutralising antibodies positive [Unknown]
